FAERS Safety Report 5148193-5 (Version None)
Quarter: 2006Q4

REPORT INFORMATION
  Report Type: 
  Country: None (occurrence: None)
  Receive Date: 20061110
  Receipt Date: 20060317
  Transmission Date: 20070319
  Serious: Yes (Hospitalization)
  Sender: FDA-Public Use
  Company Number: US-ELI_LILLY_AND_COMPANY-US200603005154

PATIENT
  Age: 68 Year
  Sex: Female
  Weight: 63.492 kg

DRUGS (4)
  1. ZYPREXA [Suspect]
     Indication: BIPOLAR DISORDER
     Dosage: 15 MG, UNK
     Dates: start: 20011101, end: 20060301
  2. ZYPREXA [Suspect]
     Dosage: 2.5 MG, UNK
     Dates: start: 20060301, end: 20060501
  3. ZYPREXA [Suspect]
     Dosage: 5 MG, UNK
     Dates: start: 20060501
  4. ZYPREXA [Suspect]
     Dosage: 10 MG, UNK
     Dates: start: 19990301, end: 20011101

REACTIONS (6)
  - BLOOD CHOLESTEROL INCREASED [None]
  - BLOOD TRIGLYCERIDES INCREASED [None]
  - DIABETES MELLITUS [None]
  - DIALYSIS [None]
  - EMOTIONAL DISTRESS [None]
  - RENAL FAILURE [None]
